FAERS Safety Report 10085325 (Version 2)
Quarter: 2014Q2

REPORT INFORMATION
  Report Type: Report from Study
  Country: BR (occurrence: BR)
  Receive Date: 20140417
  Receipt Date: 20140509
  Transmission Date: 20141212
  Serious: Yes (Hospitalization, Other)
  Sender: FDA-Public Use
  Company Number: BR-US-EMD SERONO, INC.-7282867

PATIENT
  Age: 44 Year
  Sex: Female

DRUGS (6)
  1. REBIF [Suspect]
     Indication: MULTIPLE SCLEROSIS
     Dates: start: 20080316, end: 20140403
  2. REBIF [Suspect]
     Dates: start: 201404
  3. FRONTAL [Concomitant]
     Indication: PRODUCT USED FOR UNKNOWN INDICATION
     Dosage: 1 TABLET/ AT NIGHT
  4. STUGERON [Concomitant]
     Indication: PRODUCT USED FOR UNKNOWN INDICATION
  5. LORANIL [Concomitant]
     Indication: PRODUCT USED FOR UNKNOWN INDICATION
  6. DORFLEX [Concomitant]
     Indication: PREMEDICATION
     Dosage: 30 MINUTES BEFORE THE INJECTION (REBIF)

REACTIONS (4)
  - Multiple sclerosis relapse [Recovering/Resolving]
  - Labyrinthitis [Recovering/Resolving]
  - Urinary tract infection [Recovering/Resolving]
  - Fall [Recovering/Resolving]
